FAERS Safety Report 8247601-0 (Version None)
Quarter: 2012Q1

REPORT INFORMATION
  Report Type: 
  Country: None (occurrence: None)
  Receive Date: 20120330
  Receipt Date: 20120322
  Transmission Date: 20120608
  Serious: Yes (Hospitalization, Other)
  Sender: FDA-Public Use
  Company Number: PHHY2012IE025452

PATIENT
  Age: 74 Year
  Sex: Male

DRUGS (7)
  1. TELMISARTAN [Suspect]
  2. ZOLPIDEM [Concomitant]
  3. HYDROCHLOROTHIAZIDE [Suspect]
  4. LANSOPRAZOLE [Concomitant]
  5. DIAZEPAM [Concomitant]
  6. VENLAFAXINE [Suspect]
  7. PROPRANOLOL [Concomitant]

REACTIONS (12)
  - SOMNOLENCE [None]
  - RESPIRATORY ALKALOSIS [None]
  - HYPOREFLEXIA [None]
  - CONFUSIONAL STATE [None]
  - GAIT DISTURBANCE [None]
  - HYPERTONIA [None]
  - DYSARTHRIA [None]
  - INAPPROPRIATE ANTIDIURETIC HORMONE SECRETION [None]
  - HYPOKINESIA [None]
  - VIITH NERVE PARALYSIS [None]
  - HYPONATRAEMIA [None]
  - POLYURIA [None]
